FAERS Safety Report 10329233 (Version 3)
Quarter: 2014Q3

REPORT INFORMATION
  Report Type: Spontaneous
  Country: US (occurrence: US)
  Receive Date: 20140721
  Receipt Date: 20140904
  Transmission Date: 20150326
  Serious: Yes (Hospitalization, Other)
  Sender: FDA-Public Use
  Company Number: PHHY2014US084455

PATIENT
  Age: 58 Year
  Sex: Male

DRUGS (14)
  1. BACLOFEN INTRATHECAL [Suspect]
     Active Substance: BACLOFEN
     Dosage: DOSE WAS INCREASED TO 10 PERCENT
     Route: 037
     Dates: start: 20140627
  2. BACLOFEN. [Suspect]
     Active Substance: BACLOFEN
     Dosage: UNK UKN, UNK
     Route: 048
  3. LASIK [Suspect]
     Active Substance: FUROSEMIDE\POTASSIUM CHLORIDE
     Indication: HYPERTENSION
     Dosage: UNK UKN, UNK
  4. CEFPODOXIME [Suspect]
     Active Substance: CEFPODOXIME
     Dosage: UNK UKN, UNK
  5. DOXYCYCLINE. [Suspect]
     Active Substance: DOXYCYCLINE
     Dosage: UNK UKN, UNK
  6. LEVAQUIN [Suspect]
     Active Substance: LEVOFLOXACIN
     Dosage: UNK UKN, UNK
  7. LIORESAL [Suspect]
     Active Substance: BACLOFEN
     Dosage: 186.15 PER DAY (DOSE WAS INCREASED 10 PERCENT)
     Route: 037
     Dates: start: 20140324
  8. LIORESAL [Suspect]
     Active Substance: BACLOFEN
     Dosage: 115.99 UG, PER DAY
     Route: 037
     Dates: start: 2014, end: 20140618
  9. COPAXONE [Suspect]
     Active Substance: GLATIRAMER ACETATE
     Indication: MULTIPLE SCLEROSIS
     Dosage: UNK UKN, UNK
  10. BACLOFEN INTRATHECAL [Suspect]
     Active Substance: BACLOFEN
     Dosage: 249.7 UG, PER DAY
     Route: 037
     Dates: start: 20140703
  11. BACLOFEN INTRATHECAL [Suspect]
     Active Substance: BACLOFEN
     Dosage: DOSE WAS INCREASED TO 11 PERCENT
     Route: 037
     Dates: start: 20140702
  12. BACLOFEN INTRATHECAL [Suspect]
     Active Substance: BACLOFEN
     Indication: MUSCLE SPASTICITY
     Dosage: 204.93 UG, PER DAY
     Route: 037
     Dates: start: 20140618
  13. LIORESAL [Suspect]
     Active Substance: BACLOFEN
     Indication: MUSCLE SPASTICITY
     Dosage: DOSE WAS INREASED TO 20 PERCENT
     Route: 037
     Dates: start: 20140314
  14. ANTIBIOTICS [Suspect]
     Active Substance: UNSPECIFIED INGREDIENT
     Dosage: UNK UKN, UNK
     Route: 042

REACTIONS (25)
  - Respiratory disorder [Not Recovered/Not Resolved]
  - Stenotrophomonas test positive [Not Recovered/Not Resolved]
  - Muscle atrophy [Not Recovered/Not Resolved]
  - Pruritus [Not Recovered/Not Resolved]
  - Therapeutic response decreased [Not Recovered/Not Resolved]
  - No therapeutic response [Not Recovered/Not Resolved]
  - Insomnia [Not Recovered/Not Resolved]
  - Quality of life decreased [Not Recovered/Not Resolved]
  - Urine odour abnormal [Not Recovered/Not Resolved]
  - Pain in extremity [Not Recovered/Not Resolved]
  - Hypertension [Not Recovered/Not Resolved]
  - Muscle spasticity [Not Recovered/Not Resolved]
  - Drug withdrawal syndrome [Not Recovered/Not Resolved]
  - General physical health deterioration [Not Recovered/Not Resolved]
  - Abnormal behaviour [Not Recovered/Not Resolved]
  - Escherichia test positive [Not Recovered/Not Resolved]
  - Dysstasia [Not Recovered/Not Resolved]
  - Hypotonia [Unknown]
  - Muscle rigidity [Not Recovered/Not Resolved]
  - Performance status decreased [Not Recovered/Not Resolved]
  - Condition aggravated [Not Recovered/Not Resolved]
  - Muscle spasms [Not Recovered/Not Resolved]
  - Bronchospasm [Not Recovered/Not Resolved]
  - Therapeutic response increased [Not Recovered/Not Resolved]
  - Urinary tract infection [Not Recovered/Not Resolved]

NARRATIVE: CASE EVENT DATE: 20140620
